FAERS Safety Report 19355158 (Version 4)
Quarter: 2021Q3

REPORT INFORMATION
  Report Type: Spontaneous
  Country: US (occurrence: US)
  Receive Date: 20210602
  Receipt Date: 20210831
  Transmission Date: 20211014
  Serious: Yes (Hospitalization, Other)
  Sender: FDA-Public Use
  Company Number: US-LUPIN PHARMACEUTICALS INC.-2021-07953

PATIENT
  Age: 73 Year
  Sex: Female
  Weight: 81.1 kg

DRUGS (2)
  1. POTASSIUM CHLORIDE ER CAPSULES 10 MEQ (750 MG) [Suspect]
     Active Substance: POTASSIUM CHLORIDE
     Indication: OEDEMA
     Dosage: 2250 MILLIGRAM, BID (3 CAPSULES TWICE DAILY)
     Route: 048
     Dates: start: 20210418, end: 20210504
  2. EDECRIN [Concomitant]
     Active Substance: ETHACRYNIC ACID
     Indication: OEDEMA
     Dosage: UNK
     Route: 065

REACTIONS (17)
  - Dyspepsia [Recovered/Resolved]
  - Oral pain [Recovered/Resolved]
  - Throat irritation [Recovered/Resolved]
  - Product quality issue [Unknown]
  - Foreign body in throat [Unknown]
  - Gastrooesophageal reflux disease [Unknown]
  - Cough [Unknown]
  - Burn oesophageal [Recovered/Resolved]
  - Pharyngeal injury [Unknown]
  - Gingival pain [Recovered/Resolved]
  - Gingival pruritus [Recovered/Resolved]
  - Chest pain [Recovered/Resolved]
  - Pneumonia aspiration [Recovered/Resolved]
  - Choking [Unknown]
  - Gastrointestinal injury [Unknown]
  - Oral discomfort [Recovered/Resolved]
  - Illness [Unknown]

NARRATIVE: CASE EVENT DATE: 2021
